FAERS Safety Report 6636116-9 (Version None)
Quarter: 2010Q1

REPORT INFORMATION
  Report Type: 
  Country: None (occurrence: None)
  Receive Date: 20100225
  Receipt Date: 20091109
  Transmission Date: 20100710
  Serious: Yes (Other)
  Sender: FDA-Public Use
  Company Number: US-JNJFOC-20091102780

PATIENT
  Age: 57 Year
  Sex: Female
  Weight: 108.8633 kg

DRUGS (5)
  1. MOTRIN [Suspect]
     Indication: FIBROMYALGIA
     Dosage: 800 MG, 1 IN 1 DAY, ORAL
     Route: 048
     Dates: start: 20090601, end: 20090901
  2. FLEXERIL [Concomitant]
  3. CELEXA [Concomitant]
  4. LOTREL [Concomitant]
  5. BENADRYL [Concomitant]

REACTIONS (1)
  - GASTRIC ULCER [None]
